FAERS Safety Report 8042628-6 (Version None)
Quarter: 2012Q1

REPORT INFORMATION
  Report Type: 
  Country: None (occurrence: None)
  Receive Date: 20120112
  Receipt Date: 20111215
  Transmission Date: 20120608
  Serious: Yes (Other)
  Sender: FDA-Public Use
  Company Number: JP-ASTRAZENECA-2012SE02055

PATIENT
  Age: 39 Year
  Sex: Female

DRUGS (7)
  1. LINEZOLID [Suspect]
  2. MEROPENEM [Suspect]
     Route: 042
  3. EPIRUBICIN HYDROCHLORIDE [Suspect]
  4. VANCOMYCIN HYDROCHLORIDE [Suspect]
  5. SULBCTAM SODIUM/AMPICILLIN SODIUM [Suspect]
  6. TAZOBACTAM SODIUM/PIPERACILLIN SODIUM [Suspect]
  7. CYCLOPHOSPHAMIDE [Suspect]

REACTIONS (3)
  - PREMATURE LABOUR [None]
  - PREMATURE BABY [None]
  - MATERNAL EXPOSURE DURING PREGNANCY [None]
